FAERS Safety Report 25624048 (Version 2)
Quarter: 2025Q4

REPORT INFORMATION
  Report Type: Spontaneous
  Country: US (occurrence: US)
  Receive Date: 20250730
  Receipt Date: 20251027
  Transmission Date: 20260117
  Serious: No
  Sender: SANOFI AVENTIS
  Company Number: US-SA-2025SA220443

PATIENT
  Sex: Male
  Weight: 99.773 kg

DRUGS (1)
  1. DUPIXENT [Suspect]
     Active Substance: DUPILUMAB
     Indication: Dermatitis atopic
     Dosage: 300 MG, QOW
     Route: 058

REACTIONS (5)
  - Fatigue [Recovering/Resolving]
  - Throat tightness [Recovering/Resolving]
  - Anxiety [Recovering/Resolving]
  - Nasopharyngitis [Recovering/Resolving]
  - Dry eye [Not Recovered/Not Resolved]
